FAERS Safety Report 25827279 (Version 1)
Quarter: 2025Q3

REPORT INFORMATION
  Report Type: Spontaneous
  Country: EU (occurrence: EU)
  Receive Date: 20250920
  Receipt Date: 20250920
  Transmission Date: 20251021
  Serious: Yes (Congenital Anomaly, Other)
  Sender: NOVARTIS
  Company Number: None

PATIENT
  Sex: Male

DRUGS (1)
  1. CARBAMAZEPINE [Suspect]
     Active Substance: CARBAMAZEPINE
     Indication: Foetal exposure during pregnancy
     Dosage: 400MG X 2/J, (800 MG, QD, MATERNAL EXPOSURE DURING PREGNANCY-400 MG,BID)
     Route: 064

REACTIONS (2)
  - Congenital central nervous system anomaly [Not Recovered/Not Resolved]
  - Maternal exposure during pregnancy [Recovered/Resolved]

NARRATIVE: CASE EVENT DATE: 20250716
